FAERS Safety Report 10567491 (Version 1)
Quarter: 2014Q4

REPORT INFORMATION
  Report Type: Spontaneous
  Country: US (occurrence: None)
  Receive Date: 20141105
  Receipt Date: 20141105
  Transmission Date: 20150529
  Serious: Yes (Death)
  Sender: FDA-Public Use
  Company Number: None

PATIENT
  Age: 58 Year
  Sex: Female
  Weight: 93 kg

DRUGS (1)
  1. NICOTINE TRANSDERMAL SYSTEM [Suspect]
     Active Substance: NICOTINE

REACTIONS (8)
  - Hypoxia [None]
  - Peripheral coldness [None]
  - Sepsis [None]
  - Wound infection [None]
  - Groin infection [None]
  - Acute kidney injury [None]
  - Hypotension [None]
  - Pulse absent [None]
